FAERS Safety Report 20870844 (Version 2)
Quarter: 2022Q2

REPORT INFORMATION
  Report Type: Spontaneous
  Country: JP (occurrence: JP)
  Receive Date: 20220525
  Receipt Date: 20220609
  Transmission Date: 20220721
  Serious: Yes (Hospitalization, Other)
  Sender: FDA-Public Use
  Company Number: JP-Teva Takeda Yakuhin-2022-JP-002135J

PATIENT
  Age: 52 Year
  Sex: Female

DRUGS (2)
  1. CERCINE [Suspect]
     Active Substance: DIAZEPAM
     Indication: Status epilepticus
     Dosage: 20 MILLIGRAM DAILY; 4 AMPOULES (A)
     Route: 042
  2. MIDAZOLAM [Concomitant]
     Active Substance: MIDAZOLAM
     Dosage: DOSAGE IS UNKNOWN
     Route: 065

REACTIONS (1)
  - Seizure [Not Recovered/Not Resolved]
